FAERS Safety Report 25076558 (Version 1)
Quarter: 2025Q1

REPORT INFORMATION
  Report Type: Spontaneous
  Country: JP (occurrence: JP)
  Receive Date: 20250313
  Receipt Date: 20250313
  Transmission Date: 20250408
  Serious: Yes (Death, Hospitalization, Other)
  Sender: MERCK SHARP & DOHME LLC
  Company Number: JP-MSD-M2024-28195

PATIENT
  Age: 7 Decade
  Sex: Female

DRUGS (2)
  1. KEYTRUDA [Suspect]
     Active Substance: PEMBROLIZUMAB
     Indication: Uterine cancer
     Dosage: DOSE DESCRIPTION : 200 MILLIGRAM, Q3W?DAILY DOSE : 9.4 MILLIGRAM?REGIMEN DOSE : 600  MILLIGRAM
     Route: 041
     Dates: start: 20240611, end: 20240723
  2. LENVATINIB MESYLATE [Suspect]
     Active Substance: LENVATINIB MESYLATE
     Indication: Uterine cancer
     Dosage: DOSE DESCRIPTION : 20 MILLIGRAM, QD?DAILY DOSE : 20 MILLIGRAM?REGIMEN DOSE : 1120  MILLIGRAM
     Route: 048
     Dates: start: 20240611, end: 20240805

REACTIONS (10)
  - Malignant neoplasm progression [Fatal]
  - Postrenal failure [Unknown]
  - Proteinuria [Not Recovered/Not Resolved]
  - Polydipsia [Unknown]
  - Vaginal prolapse [Unknown]
  - Hypertension [Unknown]
  - Erythema [Recovered/Resolved]
  - Hyponatraemia [Unknown]
  - Decreased appetite [Unknown]
  - Drug ineffective [Unknown]

NARRATIVE: CASE EVENT DATE: 20240101
